FAERS Safety Report 6418276-8 (Version None)
Quarter: 2009Q4

REPORT INFORMATION
  Report Type: 
  Country: None (occurrence: None)
  Receive Date: 20091026
  Receipt Date: 20090826
  Transmission Date: 20100525
  Serious: No
  Sender: FDA-Public Use
  Company Number: US-000806

PATIENT
  Sex: Male

DRUGS (1)
  1. DEGARELIX 80 MG [Suspect]
     Dosage: (80 MG 1X/MONTH SUBCUTANEOUS)
     Route: 058

REACTIONS (3)
  - APPETITE DISORDER [None]
  - NAUSEA [None]
  - VOMITING [None]
